FAERS Safety Report 25490051 (Version 2)
Quarter: 2025Q3

REPORT INFORMATION
  Report Type: Report from Study
  Country: GB (occurrence: GB)
  Receive Date: 20250627
  Receipt Date: 20250703
  Transmission Date: 20251020
  Serious: No
  Sender: REGENERON
  Company Number: GB-REGENERON PHARMACEUTICALS, INC.-2025-103379

PATIENT
  Sex: Male

DRUGS (1)
  1. CEMIPLIMAB [Suspect]
     Active Substance: CEMIPLIMAB
     Indication: Product used for unknown indication
     Route: 042
     Dates: start: 20240808, end: 20250328

REACTIONS (1)
  - Enthesopathy [Unknown]

NARRATIVE: CASE EVENT DATE: 20241123
